FAERS Safety Report 8520083-7 (Version None)
Quarter: 2012Q3

REPORT INFORMATION
  Report Type: 
  Country: None (occurrence: None)
  Receive Date: 20120719
  Receipt Date: 20120713
  Transmission Date: 20120928
  Serious: Yes (Hospitalization, Other)
  Sender: FDA-Public Use
  Company Number: US-PFIZER INC-2012166664

PATIENT
  Sex: Female

DRUGS (5)
  1. WARFARIN SODIUM [Concomitant]
     Indication: ANTICOAGULANT THERAPY
     Dosage: UNK
  2. LIPITOR [Concomitant]
     Indication: BLOOD CHOLESTEROL INCREASED
     Dosage: UNK
  3. TOVIAZ [Suspect]
     Indication: URGE INCONTINENCE
     Dosage: 4 MG, UNK
     Route: 048
     Dates: start: 20120606
  4. TOVIAZ [Suspect]
     Dosage: 8 MG, UNK
     Dates: end: 20120703
  5. POTASSIUM [Concomitant]
     Dosage: UNK

REACTIONS (1)
  - URINARY RETENTION [None]
